FAERS Safety Report 9745445 (Version 1)
Quarter: 2013Q4

REPORT INFORMATION
  Report Type: Spontaneous
  Country: US (occurrence: None)
  Receive Date: 20131206
  Receipt Date: 20131206
  Transmission Date: 20140711
  Serious: Yes (Disabling)
  Sender: FDA-Public Use
  Company Number: None

PATIENT
  Age: 51 Year
  Sex: Female
  Weight: 84.82 kg

DRUGS (13)
  1. TROSPIUM [Suspect]
     Indication: HYPERTONIC BLADDER
     Dosage: ONE CAPSULE
     Route: 048
     Dates: start: 20131123, end: 20131205
  2. METHADONE [Concomitant]
  3. VENOFER [Concomitant]
  4. VITAMIN B12 [Concomitant]
  5. INDOMETHACIN [Concomitant]
  6. SULFASALAZINE [Concomitant]
  7. CYCLOBENZAPRINE [Concomitant]
  8. BUPROPRION [Concomitant]
  9. NEXIUM [Concomitant]
  10. ACYCLOVIR [Concomitant]
  11. HYDROCHLOROTHIAZIDE [Concomitant]
  12. METOPROLOL [Concomitant]
  13. TROSPIUM [Concomitant]

REACTIONS (5)
  - Drug ineffective [None]
  - Hypertonic bladder [None]
  - Disease recurrence [None]
  - Product quality issue [None]
  - Product substitution issue [None]
